FAERS Safety Report 12333775 (Version 1)
Quarter: 2016Q2

REPORT INFORMATION
  Report Type: Spontaneous
  Country: US (occurrence: US)
  Receive Date: 20160504
  Receipt Date: 20160504
  Transmission Date: 20160815
  Serious: No
  Sender: FDA-Public Use
  Company Number: US-ROCHE-ITM201504IM013058

PATIENT
  Sex: Male

DRUGS (2)
  1. ESBRIET [Suspect]
     Active Substance: PIRFENIDONE
     Dosage: 2 CAPS THRICE DAILY
     Route: 048
     Dates: start: 20150324
  2. ESBRIET [Suspect]
     Active Substance: PIRFENIDONE
     Indication: IDIOPATHIC PULMONARY FIBROSIS
     Dosage: 2 CAPS THRICE DAILY
     Route: 048
     Dates: start: 20150311

REACTIONS (4)
  - Weight decreased [Unknown]
  - Feeling jittery [Unknown]
  - Dysgeusia [Unknown]
  - Irritability [Unknown]
